FAERS Safety Report 18536323 (Version 2)
Quarter: 2020Q4

REPORT INFORMATION
  Report Type: Spontaneous
  Country: US (occurrence: US)
  Receive Date: 20201123
  Receipt Date: 20201127
  Transmission Date: 20210114
  Serious: No
  Sender: FDA-Public Use
  Company Number: US-PFIZER INC-2020460055

PATIENT
  Age: 74 Year
  Sex: Female

DRUGS (2)
  1. PRIMIDONE. [Interacting]
     Active Substance: PRIMIDONE
     Dosage: UNK
  2. XELJANZ [Suspect]
     Active Substance: TOFACITINIB CITRATE
     Dosage: 5 MG
     Dates: start: 20201118

REACTIONS (1)
  - Labelled drug-drug interaction medication error [Unknown]
